FAERS Safety Report 7235056-4 (Version None)
Quarter: 2011Q1

REPORT INFORMATION
  Report Type: 
  Country: None (occurrence: None)
  Receive Date: 20110111
  Receipt Date: 20101230
  Transmission Date: 20110831
  Serious: Yes (Other)
  Sender: FDA-Public Use
  Company Number: 2011MA000108

PATIENT
  Age: 79 Year
  Sex: Male

DRUGS (4)
  1. OKI (KETOPROFEN LYSINE) [Suspect]
     Indication: PAIN IN EXTREMITY
     Dosage: 160 MG; QD; PO
     Route: 048
     Dates: start: 20101122, end: 20101130
  2. CETIRIZINE HCL [Suspect]
     Indication: PRURITUS
     Dosage: 10 MG; QD; PO
     Route: 048
     Dates: start: 20101120, end: 20101130
  3. ZIMOX [Concomitant]
  4. SINTROM [Suspect]
     Indication: CARDIAC VALVE PROSTHESIS USER
     Dosage: 17 MG;QW; PO
     Route: 048
     Dates: start: 19760529, end: 20101130

REACTIONS (5)
  - INTERNATIONAL NORMALISED RATIO INCREASED [None]
  - ERYSIPELAS [None]
  - PAIN IN EXTREMITY [None]
  - PRURITUS [None]
  - CARDIAC FAILURE CONGESTIVE [None]
